FAERS Safety Report 24564688 (Version 1)
Quarter: 2024Q4

REPORT INFORMATION
  Report Type: Spontaneous
  Country: ES (occurrence: ES)
  Receive Date: 20241030
  Receipt Date: 20241030
  Transmission Date: 20250114
  Serious: Yes (Other)
  Sender: AUROBINDO
  Company Number: ES-ROCHE-3039112

PATIENT
  Age: 71 Year
  Sex: Female
  Weight: 72.8 kg

DRUGS (18)
  1. CARBOPLATIN [Suspect]
     Active Substance: CARBOPLATIN
     Indication: Lung cancer metastatic
     Dosage: 481 MILLIGRAM, 3 WEEK (DOSE LAST STUDY DRUG ADMIN PRIOR AE 361 MG)
     Route: 042
     Dates: start: 20210531
  2. PEMETREXED [Suspect]
     Active Substance: PEMETREXED
     Indication: Lung cancer metastatic
     Dosage: 897 MILLIGRAM, 3 WEEK (DOSE LAST STUDY DRUG ADMIN PRIOR AE 673 MG)
     Route: 042
     Dates: start: 20210531
  3. ATEZOLIZUMAB [Suspect]
     Active Substance: ATEZOLIZUMAB
     Indication: Lung cancer metastatic
     Dosage: UNK, 3 WEEK
     Route: 042
     Dates: start: 20210531
  4. PEMBROLIZUMAB [Suspect]
     Active Substance: PEMBROLIZUMAB
     Indication: Lung cancer metastatic
     Dosage: UNK, 3 WEEK
     Route: 042
     Dates: start: 20210531
  5. TIRAGOLUMAB [Suspect]
     Active Substance: TIRAGOLUMAB
     Indication: Lung cancer metastatic
     Dosage: UNK , 3 WEEK(START DATE OF MOST RECENT DOSE OF STUDY DRUG PRIOR TO AE 07/FEB/2022)
     Route: 042
     Dates: start: 20210531
  6. ZOLEDRONIC ACID [Concomitant]
     Active Substance: ZOLEDRONIC ACID
     Indication: Product used for unknown indication
     Dosage: 4 MILLIGRAM, 3 WEEK
     Route: 042
     Dates: start: 20210531
  7. BISOPROLOL FUMARATE\HYDROCHLOROTHIAZIDE [Concomitant]
     Active Substance: BISOPROLOL FUMARATE\HYDROCHLOROTHIAZIDE
     Indication: Product used for unknown indication
     Dosage: 10 MILLILITER, ONCE A DAY
     Route: 048
     Dates: start: 20131015
  8. SIMVASTATIN [Concomitant]
     Active Substance: SIMVASTATIN
     Indication: Product used for unknown indication
     Dosage: 40 MILLIGRAM, ONCE A DAY
     Route: 048
     Dates: start: 20100826
  9. ALUMINUM HYDROXIDE [Concomitant]
     Active Substance: ALUMINUM HYDROXIDE
     Indication: Product used for unknown indication
     Dosage: 500 MILLIGRAM, ONCE A DAY
     Route: 048
     Dates: start: 20210531
  10. CIANOCOBALAMINA [Concomitant]
     Indication: Product used for unknown indication
     Dosage: 1000 MILLIGRAM, ONCE A DAY
     Route: 030
     Dates: start: 20210531
  11. ZOMETA [Concomitant]
     Active Substance: ZOLEDRONIC ACID
     Indication: Product used for unknown indication
     Dosage: 4 MILLIGRAM, 1 MONTH
     Route: 042
     Dates: start: 20210531
  12. FERINJECT [Concomitant]
     Active Substance: FERRIC CARBOXYMALTOSE
     Indication: Product used for unknown indication
     Dosage: 50 MILLIGRAM, 1 MONTH
     Route: 030
     Dates: start: 20210622
  13. METHYLPREDNISOLONE [Concomitant]
     Active Substance: METHYLPREDNISOLONE
     Indication: Rash
     Dosage: UNK UNK, AS NECESSARY
     Route: 061
     Dates: start: 20211028
  14. LORATADINE [Concomitant]
     Active Substance: LORATADINE
     Indication: Rash
     Dosage: 10 MILLIGRAM, ONCE A DAY
     Route: 048
     Dates: start: 20211028
  15. OMEPRAZOLE [Concomitant]
     Active Substance: OMEPRAZOLE
     Indication: Product used for unknown indication
     Dosage: 40 MILLIGRAM, ONCE A DAY
     Route: 048
     Dates: start: 20200411
  16. DEXAMETHASONE [Concomitant]
     Active Substance: DEXAMETHASONE
     Indication: Product used for unknown indication
     Dosage: 8 MILLIGRAM, EVERY 3 WEEK
     Route: 048
     Dates: start: 20211029
  17. OSIMERTINIB [Concomitant]
     Active Substance: OSIMERTINIB
     Indication: Product used for unknown indication
     Dosage: UNK
     Route: 065
     Dates: start: 20220727
  18. METHYLPREDNISOLONE [Concomitant]
     Active Substance: METHYLPREDNISOLONE
     Indication: Rash
     Dosage: MEDICATION DOSE: 1 OTHER
     Route: 048
     Dates: start: 20220215, end: 20220224

REACTIONS (1)
  - Hyperthyroidism [Not Recovered/Not Resolved]

NARRATIVE: CASE EVENT DATE: 20220228
